FAERS Safety Report 5625629-4 (Version None)
Quarter: 2008Q1

REPORT INFORMATION
  Report Type: 
  Country: None (occurrence: None)
  Receive Date: 20080208
  Receipt Date: 20080208
  Transmission Date: 20080703
  Serious: Yes (Hospitalization)
  Sender: FDA-Public Use
  Company Number: None

PATIENT
  Sex: Female
  Weight: 41.7309 kg

DRUGS (9)
  1. PEMETREXED [Suspect]
     Indication: TONGUE NEOPLASM MALIGNANT STAGE UNSPECIFIED
     Dosage: 500 MG/M2 Q 3 WEEKS IV (CYCLE 5)
     Route: 042
     Dates: start: 20080125
  2. BEVACIZUMAB [Suspect]
     Dosage: 15 MG/KG Q 3 WEEKS IV (CYCLE 5)
     Route: 042
     Dates: start: 20080125
  3. FOLIC ACID [Concomitant]
  4. DECADRON [Concomitant]
  5. MORPHINE SUL INJ [Concomitant]
  6. RANITIDINE [Concomitant]
  7. XYLOCAINE [Concomitant]
  8. GLUCERNA [Concomitant]
  9. ENTEREX [Concomitant]

REACTIONS (1)
  - ULCER HAEMORRHAGE [None]
